FAERS Safety Report 5355336-7 (Version None)
Quarter: 2007Q2

REPORT INFORMATION
  Report Type: 
  Country: None (occurrence: None)
  Receive Date: 20070601
  Receipt Date: 20070130
  Transmission Date: 20071010
  Serious: No
  Sender: FDA-Public Use
  Company Number: S07-USA-00089-01

PATIENT
  Age: 31 Year
  Sex: Male
  Weight: 84.8226 kg

DRUGS (4)
  1. CAMPRAL [Suspect]
     Indication: ALCOHOLISM
     Dosage: 666 MG TID PO
     Route: 048
     Dates: start: 20061215, end: 20061219
  2. CAMPRAL [Suspect]
     Indication: ALCOHOLISM
     Dosage: 666 MG TID PO
     Route: 048
     Dates: start: 20070103, end: 20070108
  3. ANTABUSE [Suspect]
     Indication: ALCOHOLISM
     Dosage: 250 MG QD
     Dates: start: 20061215
  4. EFFEXOR [Concomitant]

REACTIONS (4)
  - ABNORMAL BEHAVIOUR [None]
  - COORDINATION ABNORMAL [None]
  - DYSARTHRIA [None]
  - GAIT DISTURBANCE [None]
